FAERS Safety Report 23309474 (Version 4)
Quarter: 2024Q1

REPORT INFORMATION
  Report Type: Report from Study
  Country: US (occurrence: US)
  Receive Date: 20231218
  Receipt Date: 20240108
  Transmission Date: 20240410
  Serious: Yes (Hospitalization, Other)
  Sender: FDA-Public Use
  Company Number: US-ABBVIE-5541269

PATIENT
  Sex: Male
  Weight: 100.69 kg

DRUGS (23)
  1. CREON [Suspect]
     Active Substance: PANCRELIPASE AMYLASE\PANCRELIPASE LIPASE\PANCRELIPASE PROTEASE
     Indication: Pancreatitis chronic
     Route: 048
     Dates: start: 20231026, end: 20231211
  2. CREON [Suspect]
     Active Substance: PANCRELIPASE AMYLASE\PANCRELIPASE LIPASE\PANCRELIPASE PROTEASE
     Indication: Pancreatitis chronic
     Route: 048
  3. GABAPENTIN [Concomitant]
     Active Substance: GABAPENTIN
     Indication: Neuropathy peripheral
     Dates: start: 20231120
  4. INSULIN LISPRO [Concomitant]
     Active Substance: INSULIN LISPRO
     Indication: Diabetes mellitus
     Dosage: 0-12 UNITS
     Dates: start: 20231120
  5. LACTULOSE [Concomitant]
     Active Substance: LACTULOSE
     Indication: Liver disorder
     Dates: end: 20231212
  6. ONDANSETRON [Concomitant]
     Active Substance: ONDANSETRON
     Indication: Nausea
     Dates: start: 20231119
  7. SODIUM ZIRCONIUM CYCLOSILICATE [Concomitant]
     Active Substance: SODIUM ZIRCONIUM CYCLOSILICATE
     Indication: Hyperkalaemia
     Dates: start: 20231120, end: 20231120
  8. IOHEXOL [Concomitant]
     Active Substance: IOHEXOL
     Indication: Magnetic resonance imaging
     Dates: start: 20231119, end: 20231119
  9. SODIUM CHLORIDE [Concomitant]
     Active Substance: SODIUM CHLORIDE
     Indication: Acute kidney injury
     Dosage: 0.9 %
     Dates: start: 20231120, end: 20231121
  10. HYDROXYZINE [Concomitant]
     Active Substance: HYDROXYZINE HYDROCHLORIDE
     Indication: Anxiety
     Dates: start: 20231120
  11. PANTOPRAZOLE [Concomitant]
     Active Substance: PANTOPRAZOLE
     Indication: Gastrooesophageal reflux disease
     Dates: start: 20231120
  12. RIFAXIMINA EG [Concomitant]
     Indication: Hepatic encephalopathy prophylaxis
     Dates: start: 20231120
  13. INSULIN GLARGINE [Concomitant]
     Active Substance: INSULIN GLARGINE
     Indication: Diabetes mellitus
     Dosage: FORM STRENGTH: 20 UNIT
     Dates: start: 20231120
  14. MORPHINE [Concomitant]
     Active Substance: MORPHINE
     Indication: Pain
     Dates: start: 20231214, end: 20231216
  15. PYRIDOXINE [Concomitant]
     Active Substance: PYRIDOXINE
     Indication: Vitamin supplementation
     Dates: start: 20231120
  16. Cyanocobalamina [Concomitant]
     Indication: Vitamin supplementation
     Dates: start: 20231120
  17. METOCLOPRAMIDE [Concomitant]
     Active Substance: METOCLOPRAMIDE
     Indication: Vomiting
     Dates: start: 20231120, end: 20231120
  18. MIDODRINE [Concomitant]
     Active Substance: MIDODRINE
     Indication: Hypertension
     Dates: start: 20231120
  19. CEFTRIAXONE [Concomitant]
     Active Substance: CEFTRIAXONE\CEFTRIAXONE SODIUM
     Indication: Bacterial infection
     Dosage: 1G IN NACL
     Dates: start: 20231210, end: 20231210
  20. THIAMINE [Concomitant]
     Active Substance: THIAMINE
     Indication: Supplementation therapy
     Dates: start: 20231120, end: 20231121
  21. LACTATED RINGERS SOLUTION [Concomitant]
     Active Substance: CALCIUM CHLORIDE\POTASSIUM CHLORIDE\SODIUM CHLORIDE\SODIUM LACTATE
     Indication: Acute kidney injury
     Dates: start: 20231210, end: 20231210
  22. ALBUMIN HUMAN [Concomitant]
     Active Substance: ALBUMIN HUMAN
     Indication: Hepatorenal syndrome
     Dates: start: 20231120, end: 20231121
  23. ACETAMINOPHEN [Concomitant]
     Active Substance: ACETAMINOPHEN
     Indication: Pain
     Dates: start: 20231120, end: 20231120

REACTIONS (18)
  - Sepsis [Recovering/Resolving]
  - Dyspnoea [Unknown]
  - Nausea [Unknown]
  - Tremor [Unknown]
  - Abdominal pain [Unknown]
  - Chest pain [Unknown]
  - Cough [Unknown]
  - Pyrexia [Unknown]
  - Chills [Unknown]
  - Acute kidney injury [Recovering/Resolving]
  - Varices oesophageal [Unknown]
  - Confusional state [Unknown]
  - Infection [Unknown]
  - Hepatic cirrhosis [Unknown]
  - Nausea [Unknown]
  - Paracentesis [Unknown]
  - Fluid replacement [Unknown]
  - Vomiting [Unknown]

NARRATIVE: CASE EVENT DATE: 20230101
